FAERS Safety Report 20616657 (Version 1)
Quarter: 2022Q1

REPORT INFORMATION
  Report Type: Report from Study
  Country: US (occurrence: US)
  Receive Date: 20220321
  Receipt Date: 20220321
  Transmission Date: 20220424
  Serious: Yes (Hospitalization, Other)
  Sender: FDA-Public Use
  Company Number: US-CLOVIS ONCOLOGY-CLO-2022-000370

PATIENT
  Sex: Female

DRUGS (2)
  1. RUBRACA [Suspect]
     Active Substance: RUCAPARIB CAMSYLATE
     Indication: Ovarian cancer
     Dosage: 1 TABLET (300MG) BY MOUTH IN THE MORNING AND 2 TABLETS(600MG) BY MOUTH IN THE EVENING.
     Route: 048
     Dates: start: 20210202, end: 20220301
  2. RUBRACA [Suspect]
     Active Substance: RUCAPARIB CAMSYLATE
     Dosage: 1 TABLET (300MG) BY MOUTH IN THE MORNING AND 2 TABLETS(600MG) BY MOUTH IN THE EVENING.
     Route: 048
     Dates: start: 20220306

REACTIONS (1)
  - Intestinal operation [Unknown]
